FAERS Safety Report 6822499-3 (Version None)
Quarter: 2010Q3

REPORT INFORMATION
  Report Type: 
  Country: None (occurrence: None)
  Receive Date: 20100706
  Receipt Date: 20100706
  Transmission Date: 20110219
  Serious: Yes (Other)
  Sender: FDA-Public Use
  Company Number: None

PATIENT
  Age: 24 Year
  Sex: Female
  Weight: 98.4306 kg

DRUGS (1)
  1. L-THYROXINE 175MG GENERIC SYNTHROID [Suspect]
     Indication: THYROIDECTOMY
     Dosage: 175MG 1XDAY PO
     Route: 048
     Dates: start: 20100622, end: 20100705

REACTIONS (1)
  - IRRITABILITY [None]
